FAERS Safety Report 9017546 (Version 1)
Quarter: 2013Q1

REPORT INFORMATION
  Report Type: Spontaneous
  Country: US (occurrence: US)
  Receive Date: 20130117
  Receipt Date: 20130117
  Transmission Date: 20140127
  Serious: Yes (Other)
  Sender: FDA-Public Use
  Company Number: CHPA2013US000818

PATIENT
  Age: 68 Year
  Sex: Female

DRUGS (1)
  1. CONTROL STEP 3 7 MG [Suspect]
     Indication: SMOKING CESSATION THERAPY
     Dosage: 14 MG DAILY
     Dates: start: 20121217

REACTIONS (1)
  - Pneumonia [Recovered/Resolved]
